FAERS Safety Report 20096316 (Version 3)
Quarter: 2022Q4

REPORT INFORMATION
  Report Type: Spontaneous
  Country: DE (occurrence: DE)
  Receive Date: 20211122
  Receipt Date: 20221213
  Transmission Date: 20230112
  Serious: Yes (Hospitalization)
  Sender: FDA-Public Use
  Company Number: DE-ADRED-07126-01

PATIENT
  Age: 82 Year
  Sex: Female

DRUGS (14)
  1. BENSERAZIDE\LEVODOPA [Suspect]
     Active Substance: BENSERAZIDE\LEVODOPA
     Indication: Product used for unknown indication
     Dosage: UNK (25|100 MG, REGIMEN)
     Route: 065
  2. CARBIDOPA\LEVODOPA [Suspect]
     Active Substance: CARBIDOPA\LEVODOPA
     Indication: Product used for unknown indication
     Dosage: UNK (100/25 MG, REGIMEN)
     Route: 065
  3. CARBIDOPA\LEVODOPA [Suspect]
     Active Substance: CARBIDOPA\LEVODOPA
     Dosage: UNK(200/50 MG, REGIMEN)
     Route: 065
  4. ROTIGOTINE [Suspect]
     Active Substance: ROTIGOTINE
     Indication: Product used for unknown indication
     Dosage: 2 MILLIGRAM, QD(2 MG, 1-0-0-0)
     Route: 065
  5. PANTOPRAZOLE SODIUM [Concomitant]
     Active Substance: PANTOPRAZOLE SODIUM
     Dosage: 40 MILLIGRAM, QD (40 MG, 0-1-0-0)
     Route: 065
  6. PROTHIPENDYL [Concomitant]
     Active Substance: PROTHIPENDYL
     Dosage: 384 MILLIGRAM, QD(48 MG, 0-0-0-8)
     Route: 065
  7. ATORVASTATIN [Concomitant]
     Active Substance: ATORVASTATIN
     Dosage: 10 MG, QD(20 MG, 0-0-0-0.5)
     Route: 065
  8. CHOLECALCIFEROL [Concomitant]
     Active Substance: CHOLECALCIFEROL
     Dosage: 1000 INTERNATIONAL UNIT,QD(1000 IE,1-0-0-0)
     Route: 065
  9. ECOTHIOPATE IODIDE [Concomitant]
     Dosage: 1529 MICROGRAM(1529 ?G, REGIMEN)
     Route: 065
  10. RAMIPRIL [Concomitant]
     Active Substance: RAMIPRIL
     Dosage: 2.5 MILLIGRAM, QD(2.5 MG, 1-0-0-0)
     Route: 065
  11. ASPIRIN [Concomitant]
     Active Substance: ASPIRIN
     Dosage: 100 MILLIGRAM, QD(100 MG, 1-0-0-0)
     Route: 065
  12. SAFINAMIDE [Concomitant]
     Active Substance: SAFINAMIDE
     Dosage: 100 MILLIGRAM, QD(100 MG, 1-0-0-0)
     Route: 065
  13. FOLIC ACID [Concomitant]
     Active Substance: FOLIC ACID
     Dosage: 0.4 MILLIGRAM, QD(0.4 MG, 0-1-0-0)
     Route: 065
  14. KALIUM IODIDE [Concomitant]
     Dosage: 1529 ?G, REGIMEN
     Route: 065

REACTIONS (6)
  - Confusional state [Unknown]
  - Condition aggravated [Unknown]
  - Disorientation [Unknown]
  - General physical health deterioration [Unknown]
  - Parkinsonism [Unknown]
  - On and off phenomenon [Unknown]
